FAERS Safety Report 22531675 (Version 1)
Quarter: 2023Q2

REPORT INFORMATION
  Report Type: Report from Study
  Country: EG (occurrence: EG)
  Receive Date: 20230607
  Receipt Date: 20230607
  Transmission Date: 20230722
  Serious: Yes (Other)
  Sender: FDA-Public Use
  Company Number: EG-002147023-NVSC2023EG126224

PATIENT
  Age: 76 Year
  Sex: Female

DRUGS (7)
  1. LUCENTIS [Suspect]
     Active Substance: RANIBIZUMAB
     Indication: Age-related macular degeneration
     Dosage: UNK (RIGHT EYE)
     Route: 065
     Dates: start: 20220213, end: 20230323
  2. BROLUCIZUMAB [Suspect]
     Active Substance: BROLUCIZUMAB
     Indication: Age-related macular degeneration
     Dosage: UNK
     Route: 065
     Dates: start: 20230226, end: 20230501
  3. EXFORGE [Concomitant]
     Active Substance: AMLODIPINE BESYLATE\VALSARTAN
     Indication: Hypertension
     Dosage: 1 DOSAGE FORM, QD (AT NIGHT, STARTED 1 YEAR AGO)
     Route: 048
  4. METOPROLOL TARTRATE [Concomitant]
     Active Substance: METOPROLOL TARTRATE
     Indication: Hypertension
     Dosage: 1 DOSAGE FORM, QD (IN THE MORNING, STARTED 1 YEAR AGO)
     Route: 048
  5. GLIPTUS [Concomitant]
     Indication: Diabetes mellitus
     Dosage: 1 DOSAGE FORM, QD (AFTER LUNCH, STARTED 3-4 YEARS AGO)
     Route: 048
  6. BRIMONIDINE TARTRATE [Concomitant]
     Active Substance: BRIMONIDINE TARTRATE
     Indication: Intraocular pressure test
     Dosage: UNK UNK, BID
     Route: 065
     Dates: start: 20220213
  7. TWINZOL [Concomitant]
     Indication: Intraocular pressure test
     Dosage: UNK UNK, BID
     Route: 065
     Dates: start: 20230213

REACTIONS (3)
  - Macular oedema [Recovered/Resolved]
  - Vision blurred [Recovered/Resolved]
  - Drug ineffective [Not Recovered/Not Resolved]

NARRATIVE: CASE EVENT DATE: 20230323
